FAERS Safety Report 7237428-0 (Version None)
Quarter: 2011Q1

REPORT INFORMATION
  Report Type: 
  Country: None (occurrence: None)
  Receive Date: 20110111
  Receipt Date: 20110105
  Transmission Date: 20110831
  Serious: Yes (Other)
  Sender: FDA-Public Use
  Company Number: DSA_44535_2010

PATIENT
  Sex: Female

DRUGS (2)
  1. ELONTRIL (ELONTRIL-BUPROPION HYDROCHLORIDE EXTENDED RELEASE TABLET) (N [Suspect]
     Indication: DEPRESSION
     Dosage: (150 MG DAILY ORAL)
     Route: 048
     Dates: start: 20100618, end: 20100629
  2. VENLAFAXINE HYDROCHLORIDE [Concomitant]

REACTIONS (1)
  - AGGRESSION [None]
